FAERS Safety Report 10539964 (Version 1)
Quarter: 2014Q4

REPORT INFORMATION
  Report Type: Spontaneous
  Country: US (occurrence: None)
  Receive Date: 20141022
  Receipt Date: 20141022
  Transmission Date: 20150529
  Serious: Yes (Death)
  Sender: FDA-Public Use
  Company Number: DEP_02335_2014

PATIENT
  Sex: Male

DRUGS (1)
  1. LAZANDA [Suspect]
     Active Substance: FENTANYL CITRATE
     Indication: BREAKTHROUGH PAIN
     Dosage: 1-2 SPRAYS PER NOSTRIL, AS NEEDED, MAXIMUM DOSE OF 4 TIMES DAILY NASAL)
     Dates: start: 20140718

REACTIONS (1)
  - Death [None]

NARRATIVE: CASE EVENT DATE: 2014
